FAERS Safety Report 18883788 (Version 1)
Quarter: 2021Q1

REPORT INFORMATION
  Report Type: Report from Study
  Country: US (occurrence: US)
  Receive Date: 20210212
  Receipt Date: 20210212
  Transmission Date: 20210420
  Serious: Yes (Other)
  Sender: FDA-Public Use
  Company Number: US-JNJFOC-20210205374

PATIENT
  Age: 40 Year
  Sex: Female

DRUGS (3)
  1. SPRAVATO [Suspect]
     Active Substance: ESKETAMINE
     Dosage: 84MG, 37 TOTAL DOSES
     Dates: start: 20191206, end: 20210118
  2. SPRAVATO [Suspect]
     Active Substance: ESKETAMINE
     Dates: start: 20210201, end: 20210201
  3. SPRAVATO [Suspect]
     Active Substance: ESKETAMINE
     Indication: DEPRESSION
     Dates: start: 20191203, end: 20191203

REACTIONS (2)
  - Dizziness [Unknown]
  - Vision blurred [Unknown]

NARRATIVE: CASE EVENT DATE: 20210201
